FAERS Safety Report 5902755-3 (Version None)
Quarter: 2008Q3

REPORT INFORMATION
  Report Type: 
  Country: None (occurrence: None)
  Receive Date: 20080930
  Receipt Date: 20080919
  Transmission Date: 20090109
  Serious: No
  Sender: FDA-Public Use
  Company Number: DK-JNJFOC-20080904384

PATIENT
  Sex: Female
  Weight: 62.8 kg

DRUGS (3)
  1. RISPERDAL [Suspect]
     Route: 048
  2. RISPERDAL [Suspect]
     Indication: SCHIZOPHRENIA
     Route: 048
  3. RISPERDAL CONSTA [Suspect]
     Indication: SCHIZOPHRENIA
     Route: 030

REACTIONS (1)
  - LEUKOPENIA [None]
